FAERS Safety Report 7518108-0 (Version None)
Quarter: 2011Q2

REPORT INFORMATION
  Report Type: 
  Country: None (occurrence: None)
  Receive Date: 20110531
  Receipt Date: 20110531
  Transmission Date: 20111010
  Serious: Yes (Hospitalization)
  Sender: FDA-Public Use
  Company Number: None

PATIENT
  Age: 50 Year
  Sex: Male
  Weight: 100 kg

DRUGS (3)
  1. IBUPROFEN [Concomitant]
  2. ABILIFY [Suspect]
     Indication: SCHIZOPHRENIA
     Dosage: 20 MG DAILY ORAL
     Route: 048
     Dates: start: 20110415, end: 20110525
  3. BACLOFEN [Concomitant]

REACTIONS (3)
  - COGNITIVE DISORDER [None]
  - HALLUCINATION, VISUAL [None]
  - SUICIDAL IDEATION [None]
